FAERS Safety Report 25095547 (Version 2)
Quarter: 2025Q2

REPORT INFORMATION
  Report Type: Spontaneous
  Country: US (occurrence: US)
  Receive Date: 20250319
  Receipt Date: 20250512
  Transmission Date: 20250717
  Serious: No
  Sender: SANOFI AVENTIS
  Company Number: US-SANOFI-02429906

PATIENT

DRUGS (10)
  1. AMBIEN [Suspect]
     Active Substance: ZOLPIDEM TARTRATE
  2. ZALEPLON [Suspect]
     Active Substance: ZALEPLON
  3. ESZOPICLONE [Suspect]
     Active Substance: ESZOPICLONE
  4. RAMELTEON [Suspect]
     Active Substance: RAMELTEON
  5. MELATONIN [Suspect]
     Active Substance: MELATONIN
  6. VALIUM [Suspect]
     Active Substance: DIAZEPAM
  7. ATIVAN [Suspect]
     Active Substance: LORAZEPAM
  8. RESTORIL [Suspect]
     Active Substance: TEMAZEPAM
  9. METHOCARBAMOL [Suspect]
     Active Substance: METHOCARBAMOL
  10. DIPHENHYDRAMINE [Suspect]
     Active Substance: DIPHENHYDRAMINE

REACTIONS (1)
  - Product prescribing error [Unknown]
